FAERS Safety Report 16935562 (Version 3)
Quarter: 2019Q4

REPORT INFORMATION
  Report Type: Spontaneous
  Country: US (occurrence: US)
  Receive Date: 20191018
  Receipt Date: 20191202
  Transmission Date: 20200122
  Serious: No
  Sender: FDA-Public Use
  Company Number: US-SA-2019SA288780

PATIENT
  Age: 50 Year
  Sex: Male
  Weight: 102.4 kg

DRUGS (6)
  1. ATORVASTATIN [Concomitant]
     Active Substance: ATORVASTATIN
  2. DUPIXENT [Suspect]
     Active Substance: DUPILUMAB
     Dosage: 300 MG
     Route: 058
     Dates: start: 201806
  3. ASPIRIN 81 [Concomitant]
     Active Substance: ASPIRIN
  4. DUPIXENT [Suspect]
     Active Substance: DUPILUMAB
     Dosage: 300 MG, MORE THAN EVERY 2 WEEKS, MORE LIKE EVERY 3 WEEKS
     Route: 058
  5. LISINOPRIL. [Concomitant]
     Active Substance: LISINOPRIL
  6. HYDROCORTISONE. [Concomitant]
     Active Substance: HYDROCORTISONE

REACTIONS (4)
  - Intentional product misuse [Unknown]
  - Folliculitis [Unknown]
  - Dermatitis [Unknown]
  - Product dose omission [Unknown]
